FAERS Safety Report 6808114-3 (Version None)
Quarter: 2010Q2

REPORT INFORMATION
  Report Type: 
  Country: None (occurrence: None)
  Receive Date: 20100629
  Receipt Date: 20090413
  Transmission Date: 20101027
  Serious: No
  Sender: FDA-Public Use
  Company Number: US-PFIZER INC-2009178362

PATIENT
  Sex: Female
  Weight: 120.6 kg

DRUGS (4)
  1. ARTHROTEC [Suspect]
     Indication: ARTHRITIS
     Dosage: DICLOFENAC 75 MG/ MISOPROSTOL 0.2 MG, TWICE DAILY
     Dates: start: 20090223
  2. DYAZIDE [Concomitant]
     Dosage: UNK
  3. MULTI-VITAMINS [Concomitant]
     Dosage: UNK
  4. HYALURONIC ACID [Concomitant]
     Dosage: UNK

REACTIONS (4)
  - FLATULENCE [None]
  - HUNGER [None]
  - INCORRECT DOSE ADMINISTERED [None]
  - NAUSEA [None]
